FAERS Safety Report 9973876 (Version 1)
Quarter: 2014Q1

REPORT INFORMATION
  Report Type: Spontaneous
  Country: US (occurrence: US)
  Receive Date: 20140306
  Receipt Date: 20140306
  Transmission Date: 20141002
  Serious: No
  Sender: FDA-Public Use
  Company Number: US-MYLANLABS-2014S1000943

PATIENT
  Age: 67 Year
  Sex: Male
  Weight: 104.33 kg

DRUGS (8)
  1. RABEPRAZOLE SODIUM DELAYED-RELEASE TABLETS [Suspect]
     Indication: DYSPEPSIA
     Route: 048
     Dates: start: 201311
  2. RABEPRAZOLE SODIUM DELAYED-RELEASE TABLETS [Suspect]
     Indication: DYSPEPSIA
     Route: 048
     Dates: start: 201311
  3. CIPRO [Concomitant]
  4. KLONOPIN [Concomitant]
  5. FINASTERIDE [Concomitant]
  6. SAW PALMETTO [Concomitant]
  7. LIBRAX [Concomitant]
  8. SUBOXONE [Concomitant]

REACTIONS (2)
  - Drug ineffective [Not Recovered/Not Resolved]
  - Dyspepsia [Not Recovered/Not Resolved]
